FAERS Safety Report 24702041 (Version 3)
Quarter: 2024Q4

REPORT INFORMATION
  Report Type: Spontaneous
  Country: US (occurrence: US)
  Receive Date: 20241205
  Receipt Date: 20241218
  Transmission Date: 20250115
  Serious: Yes (Hospitalization)
  Sender: ELI LILLY AND COMPANY
  Company Number: US-ELI_LILLY_AND_COMPANY-US202412002145

PATIENT
  Age: 56 Year
  Sex: Female

DRUGS (1)
  1. ZEPBOUND [Suspect]
     Active Substance: TIRZEPATIDE
     Indication: Product used for unknown indication
     Dosage: 5 MG, UNKNOWN
     Route: 065

REACTIONS (9)
  - Feeding disorder [Unknown]
  - Dyspnoea [Unknown]
  - Cough [Unknown]
  - Illness [Unknown]
  - Influenza [Unknown]
  - COVID-19 [Unknown]
  - Renal pain [Unknown]
  - Dehydration [Unknown]
  - Asthenia [Unknown]
